FAERS Safety Report 8537185-1 (Version None)
Quarter: 2012Q3

REPORT INFORMATION
  Report Type: 
  Country: None (occurrence: None)
  Receive Date: 20120725
  Receipt Date: 20120719
  Transmission Date: 20120928
  Serious: No
  Sender: FDA-Public Use
  Company Number: US-TEVA-349663USA

PATIENT
  Sex: Female
  Weight: 53.118 kg

DRUGS (2)
  1. INTEGRA-F [Concomitant]
     Indication: ANAEMIA
     Dosage: 1 TABLET;
     Route: 048
  2. COPAXONE [Suspect]
     Indication: MULTIPLE SCLEROSIS
     Dosage: 20 MILLIGRAM;
     Route: 058
     Dates: start: 20120201

REACTIONS (1)
  - PRURITUS [None]
